FAERS Safety Report 6939437-5 (Version None)
Quarter: 2010Q3

REPORT INFORMATION
  Report Type: 
  Country: None (occurrence: None)
  Receive Date: 20100824
  Receipt Date: 20100823
  Transmission Date: 20110219
  Serious: Yes (Disabling, Other)
  Sender: FDA-Public Use
  Company Number: US-MERCK-1004USA04198

PATIENT
  Age: 59 Year
  Sex: Female

DRUGS (2)
  1. FOSAMAX [Suspect]
     Indication: OSTEOPENIA
     Route: 048
     Dates: start: 20040101, end: 20081001
  2. FOSAMAX PLUS D [Suspect]
     Indication: OSTEOPENIA
     Route: 048
     Dates: start: 20040101, end: 20081001

REACTIONS (18)
  - ANXIETY [None]
  - BONE DENSITY DECREASED [None]
  - DEPRESSION [None]
  - EDENTULOUS [None]
  - FISTULA DISCHARGE [None]
  - GASTROINTESTINAL DISORDER [None]
  - GINGIVAL RECESSION [None]
  - IMPAIRED HEALING [None]
  - JAW DISORDER [None]
  - OSTEOMYELITIS [None]
  - OSTEONECROSIS OF JAW [None]
  - OSTEOPOROSIS [None]
  - PERIODONTITIS [None]
  - PRIMARY SEQUESTRUM [None]
  - SENSITIVITY OF TEETH [None]
  - SPINAL COLUMN STENOSIS [None]
  - TOOTH ABSCESS [None]
  - TOOTH FRACTURE [None]
